FAERS Safety Report 4454004-3 (Version None)
Quarter: 2004Q3

REPORT INFORMATION
  Report Type: 
  Country: None (occurrence: None)
  Receive Date: 20040920
  Receipt Date: 20030730
  Transmission Date: 20050211
  Serious: Yes (Death, Other)
  Sender: FDA-Public Use
  Company Number: PHBS2004KR12145

PATIENT
  Age: 86 Year
  Sex: Male

DRUGS (5)
  1. EXELON [Suspect]
     Indication: DEMENTIA ALZHEIMER'S TYPE
     Dosage: 3 MG/DAY
     Route: 048
     Dates: start: 20000708
  2. RISPERIDONE [Concomitant]
  3. DISGREN [Concomitant]
  4. ASTRIX [Concomitant]
  5. TRAZODONE [Concomitant]

REACTIONS (3)
  - BEDRIDDEN [None]
  - PARKINSONISM [None]
  - PNEUMONIA [None]
